FAERS Safety Report 9318968 (Version 1)
Quarter: 2013Q2

REPORT INFORMATION
  Report Type: Spontaneous
  Country: US (occurrence: US)
  Receive Date: 20130530
  Receipt Date: 20130530
  Transmission Date: 20140414
  Serious: No
  Sender: FDA-Public Use
  Company Number: US-NOVEN-13US006426

PATIENT
  Sex: Male
  Weight: 27.21 kg

DRUGS (3)
  1. DAYTRANA [Suspect]
     Indication: ATTENTION DEFICIT/HYPERACTIVITY DISORDER
     Dosage: 20 MG, UNK
     Route: 062
     Dates: start: 200906
  2. INTUNIV [Concomitant]
     Indication: ATTENTION DEFICIT/HYPERACTIVITY DISORDER
     Dosage: 2 MG, EVENING
     Route: 048
  3. AMANTADINE [Concomitant]
     Indication: ANXIETY
     Dosage: 50MG/TSP, 1.5 TSP BID
     Route: 048

REACTIONS (2)
  - Disturbance in social behaviour [Unknown]
  - Product quality issue [Unknown]
